FAERS Safety Report 4470619-0 (Version None)
Quarter: 2004Q4

REPORT INFORMATION
  Report Type: 
  Country: None (occurrence: None)
  Receive Date: 20041006
  Receipt Date: 20041006
  Transmission Date: 20050328
  Serious: Yes (Hospitalization)
  Sender: FDA-Public Use
  Company Number: None

PATIENT
  Age: 56 Year
  Sex: Male
  Weight: 48.5349 kg

DRUGS (4)
  1. DOCETAXEL 30 MG/M2= 49 MG [Suspect]
     Indication: SQUAMOUS CELL CARCINOMA
     Dosage: DAY 1 + 8, HELD D15
  2. CARBOPLATIN [Suspect]
     Indication: CARCINOMA
     Dosage: DAY 1 DAY 1 + 8, HELD D15
  3. IFOSFAMIDE [Suspect]
     Dosage: DAY 1 + 8, HELD D15
  4. MESNA [Suspect]
     Dosage: DAY 1 + 8, HELD D15

REACTIONS (12)
  - ASTHENIA [None]
  - DEHYDRATION [None]
  - GENERAL NUTRITION DISORDER [None]
  - HYPERNATRAEMIA [None]
  - HYPOALBUMINAEMIA [None]
  - HYPOVOLAEMIA [None]
  - INFECTION [None]
  - LUNG INFILTRATION [None]
  - MEDICAL DEVICE COMPLICATION [None]
  - NEUTROPENIA [None]
  - STAPHYLOCOCCAL BACTERAEMIA [None]
  - THROMBOCYTOPENIA [None]
